FAERS Safety Report 11642766 (Version 1)
Quarter: 2015Q4

REPORT INFORMATION
  Report Type: Spontaneous
  Country: US (occurrence: US)
  Receive Date: 20151020
  Receipt Date: 20151020
  Transmission Date: 20160304
  Serious: No
  Sender: FDA-Public Use
  Company Number: US-009507513-1510USA008176

PATIENT
  Sex: Female

DRUGS (2)
  1. PRALUENT [Concomitant]
     Active Substance: ALIROCUMAB
  2. ZONTIVITY [Suspect]
     Active Substance: VORAPAXAR SULFATE
     Dosage: 2.08 MG, QD
     Route: 048
     Dates: end: 201510

REACTIONS (2)
  - Ocular hyperaemia [Recovered/Resolved]
  - Abnormal sensation in eye [Recovered/Resolved]

NARRATIVE: CASE EVENT DATE: 201510
